FAERS Safety Report 7819185-X (Version None)
Quarter: 2011Q4

REPORT INFORMATION
  Report Type: 
  Country: None (occurrence: None)
  Receive Date: 20111012
  Receipt Date: 20110930
  Transmission Date: 20120403
  Serious: Yes (Hospitalization, Other)
  Sender: FDA-Public Use
  Company Number: AUR-APL-2009-01496

PATIENT
  Age: 58 Year
  Sex: Female

DRUGS (7)
  1. SIMVASTATIN [Suspect]
     Indication: BLOOD CHOLESTEROL INCREASED
  2. ATROPINE SULFATE [Suspect]
     Indication: PREMEDICATION
  3. PROPOFOL [Suspect]
     Indication: PREMEDICATION
  4. DEXTROPROPOXYPHENE/PARACETAMOL (DI-GESIC) [Suspect]
  5. HYDROXYZINE HYDROCHLORIDE [Suspect]
     Indication: PREMEDICATION
  6. OMEPRAZOLE [Suspect]
     Indication: PREMEDICATION
  7. BROMAZEPAM (BROMAZEPAM) [Suspect]
     Indication: PRODUCT USED FOR UNKNOWN INDICATION

REACTIONS (6)
  - LEUKOCYTOSIS [None]
  - PYREXIA [None]
  - PRESYNCOPE [None]
  - SKIN OEDEMA [None]
  - ACUTE GENERALISED EXANTHEMATOUS PUSTULOSIS [None]
  - INFLAMMATION [None]
